FAERS Safety Report 25176797 (Version 1)
Quarter: 2025Q2

REPORT INFORMATION
  Report Type: Spontaneous
  Country: PL (occurrence: PL)
  Receive Date: 20250409
  Receipt Date: 20250409
  Transmission Date: 20250716
  Serious: Yes (Other)
  Sender: TEVA
  Company Number: None

PATIENT
  Age: 39 Year
  Sex: Male
  Weight: 85 kg

DRUGS (1)
  1. CARBAMAZEPINE [Suspect]
     Active Substance: CARBAMAZEPINE
     Indication: Brain tumour operation
     Dosage: HIGHER DOSES AT THE BEGINNING OF THE TREATMENT (NOT SPECIFIED): FINLEPSIN RETARD
     Route: 048
     Dates: start: 20190110, end: 20190905

REACTIONS (4)
  - Somnolence [Unknown]
  - Aphasia [Unknown]
  - Tremor [Unknown]
  - Seizure [Unknown]
